FAERS Safety Report 4680977-X (Version None)
Quarter: 2005Q2

REPORT INFORMATION
  Report Type: 
  Country: None (occurrence: None)
  Receive Date: 20050601
  Receipt Date: 20050601
  Transmission Date: 20051028
  Serious: Yes (Hospitalization)
  Sender: FDA-Public Use
  Company Number: None

PATIENT
  Age: 82 Year
  Sex: Male

DRUGS (1)
  1. WARFARIN  7.5MG [Suspect]
     Indication: ATRIAL FIBRILLATION
     Dosage: 7.5 MG DAILY ORAL
     Route: 048
     Dates: start: 20050201, end: 20050522

REACTIONS (12)
  - DRUG INEFFECTIVE [None]
  - DRUG TOXICITY [None]
  - DYSPNOEA [None]
  - DYSPNOEA PAROXYSMAL NOCTURNAL [None]
  - EXERCISE CAPACITY DECREASED [None]
  - FALL [None]
  - INTERNATIONAL NORMALISED RATIO INCREASED [None]
  - OEDEMA [None]
  - SWELLING [None]
  - URETHRAL HAEMORRHAGE [None]
  - WEIGHT INCREASED [None]
  - WOUND SECRETION [None]
